FAERS Safety Report 6999793-9 (Version None)
Quarter: 2010Q3

REPORT INFORMATION
  Report Type: 
  Country: None (occurrence: None)
  Receive Date: 20100920
  Receipt Date: 20100907
  Transmission Date: 20110219
  Serious: Yes (Other)
  Sender: FDA-Public Use
  Company Number: JP-JNJFOC-20080901112

PATIENT
  Age: 30 Year
  Sex: Male

DRUGS (3)
  1. RISPERDAL [Suspect]
     Indication: PRODUCT USED FOR UNKNOWN INDICATION
     Route: 048
  2. RISPERDAL [Suspect]
     Dosage: 1 MG IN MORNING AND 2 MG AT NIGHT
     Route: 048
  3. ABILIFY [Suspect]
     Indication: PRODUCT USED FOR UNKNOWN INDICATION
     Route: 048

REACTIONS (28)
  - ABDOMINAL DISTENSION [None]
  - ALANINE AMINOTRANSFERASE INCREASED [None]
  - ASPARTATE AMINOTRANSFERASE INCREASED [None]
  - BLOOD CHOLESTEROL INCREASED [None]
  - BLOOD GLUCOSE ABNORMAL [None]
  - BLOOD URIC ACID INCREASED [None]
  - DIABETES MELLITUS [None]
  - DYSPNOEA [None]
  - HOMICIDAL IDEATION [None]
  - HOSTILITY [None]
  - HYPERTENSION [None]
  - INAPPROPRIATE AFFECT [None]
  - INCORRECT DOSE ADMINISTERED [None]
  - INCREASED APPETITE [None]
  - INSOMNIA [None]
  - LIVER FUNCTION TEST ABNORMAL [None]
  - MEMORY IMPAIRMENT [None]
  - MENTAL DISORDER [None]
  - MENTAL STATUS CHANGES [None]
  - NASAL CONGESTION [None]
  - PERSECUTORY DELUSION [None]
  - SOLILOQUY [None]
  - SOMNOLENCE [None]
  - SUICIDE ATTEMPT [None]
  - THIRST [None]
  - WEIGHT INCREASED [None]
  - WHITE BLOOD CELL COUNT DECREASED [None]
  - WHITE BLOOD CELL COUNT INCREASED [None]
